FAERS Safety Report 23097552 (Version 1)
Quarter: 2023Q4

REPORT INFORMATION
  Report Type: Spontaneous
  Country: US (occurrence: None)
  Receive Date: 20231023
  Receipt Date: 20231023
  Transmission Date: 20240110
  Serious: No
  Sender: FDA-Public Use
  Company Number: None

PATIENT
  Sex: 0

DRUGS (1)
  1. CYCLOSPORINE [Suspect]
     Active Substance: CYCLOSPORINE

REACTIONS (6)
  - Drug ineffective [None]
  - Lacrimation increased [None]
  - Periorbital disorder [None]
  - Swelling of eyelid [None]
  - Erythema of eyelid [None]
  - Eyelids pruritus [None]
